FAERS Safety Report 7204298-6 (Version None)
Quarter: 2010Q4

REPORT INFORMATION
  Report Type: 
  Country: None (occurrence: None)
  Receive Date: 20101230
  Receipt Date: 20101223
  Transmission Date: 20110411
  Serious: Yes (Life-Threatening, Other)
  Sender: FDA-Public Use
  Company Number: US-PERRIGO-10US015854

PATIENT
  Sex: Female
  Weight: 62.585 kg

DRUGS (2)
  1. NAPROXEN SODIUM [Suspect]
     Indication: ARTHROPATHY
     Dosage: UNKNOWN
     Route: 065
     Dates: start: 20070101
  2. NAPROXEN SODIUM [Suspect]
     Indication: BACK DISORDER

REACTIONS (2)
  - INCORRECT DRUG ADMINISTRATION DURATION [None]
  - MYOCARDIAL INFARCTION [None]
